FAERS Safety Report 6749805-2 (Version None)
Quarter: 2010Q2

REPORT INFORMATION
  Report Type: 
  Country: None (occurrence: None)
  Receive Date: 20100601
  Receipt Date: 20100526
  Transmission Date: 20101027
  Serious: Yes (Other)
  Sender: FDA-Public Use
  Company Number: US-MERCK-1002USA01253

PATIENT
  Age: 63 Year
  Sex: Female

DRUGS (3)
  1. FOSAMAX [Suspect]
     Route: 048
     Dates: start: 20030101
  2. PANTOPRAZOLE [Concomitant]
     Route: 065
  3. RANITIDINE [Concomitant]
     Route: 065

REACTIONS (18)
  - ABDOMINAL DISCOMFORT [None]
  - ABDOMINAL PAIN [None]
  - ARTHROPATHY [None]
  - CARDIAC DISORDER [None]
  - DISCOMFORT [None]
  - DRUG HYPERSENSITIVITY [None]
  - GALLBLADDER DISORDER [None]
  - GASTRIC POLYPS [None]
  - GOUTY ARTHRITIS [None]
  - HIATUS HERNIA [None]
  - MUSCLE SPASMS [None]
  - NAUSEA [None]
  - OESOPHAGEAL DISORDER [None]
  - OESOPHAGEAL PERFORATION [None]
  - PAIN [None]
  - STRESS [None]
  - THYROID DISORDER [None]
  - VOMITING [None]
